FAERS Safety Report 17137002 (Version 4)
Quarter: 2020Q1

REPORT INFORMATION
  Report Type: Report from Study
  Country: US (occurrence: US)
  Receive Date: 20191210
  Receipt Date: 20200212
  Transmission Date: 20200409
  Serious: Yes (Death, Hospitalization, Other)
  Sender: FDA-Public Use
  Company Number: US-TAKEDA-2019TUS050678

PATIENT
  Age: 41 Year
  Sex: Female

DRUGS (1)
  1. BRIGATINIB [Suspect]
     Active Substance: BRIGATINIB
     Indication: LUNG NEOPLASM MALIGNANT
     Dosage: 180 MILLIGRAM, QD
     Route: 048
     Dates: start: 20190830

REACTIONS (10)
  - Nausea [Unknown]
  - Muscle spasms [Unknown]
  - Muscle strain [Unknown]
  - Blood electrolytes increased [Unknown]
  - Pleural effusion [Unknown]
  - Vomiting [Recovered/Resolved]
  - Death [Fatal]
  - Brain neoplasm [Unknown]
  - Pain in extremity [Unknown]
  - Headache [Unknown]

NARRATIVE: CASE EVENT DATE: 201908
